FAERS Safety Report 9925439 (Version 1)
Quarter: 2014Q1

REPORT INFORMATION
  Report Type: Spontaneous
  Country: US (occurrence: US)
  Receive Date: 20140226
  Receipt Date: 20140226
  Transmission Date: 20141002
  Serious: No
  Sender: FDA-Public Use
  Company Number: US-009507513-1402USA011132

PATIENT
  Age: 20 Year
  Sex: Female
  Weight: 77.3 kg

DRUGS (1)
  1. IMPLANON [Suspect]
     Indication: CONTRACEPTION
     Dosage: EVERY 3 YEARS, 1 ROD
     Route: 059
     Dates: start: 20110627

REACTIONS (4)
  - Menstruation irregular [Unknown]
  - Amenorrhoea [Unknown]
  - Menorrhagia [Unknown]
  - Mood swings [Unknown]
